FAERS Safety Report 25481319 (Version 3)
Quarter: 2025Q3

REPORT INFORMATION
  Report Type: Spontaneous
  Country: US (occurrence: US)
  Receive Date: 20250626
  Receipt Date: 20250729
  Transmission Date: 20251021
  Serious: Yes (Hospitalization, Other)
  Sender: JOHNSON AND JOHNSON
  Company Number: US-JNJFOC-20250626396

PATIENT
  Age: 76 Year
  Sex: Male
  Weight: 108.9 kg

DRUGS (1)
  1. DARZALEX FASPRO [Suspect]
     Active Substance: DARATUMUMAB\HYALURONIDASE-FIHJ
     Indication: Plasma cell myeloma
     Dosage: LAST DOSE ADMINISTERED ON 22/MAY/2025
     Route: 058
     Dates: start: 20200505

REACTIONS (4)
  - Syncope [Recovering/Resolving]
  - Cerebrovascular accident [Unknown]
  - Hypotension [Recovering/Resolving]
  - Hypovolaemia [Recovering/Resolving]

NARRATIVE: CASE EVENT DATE: 20250619
